FAERS Safety Report 7541531-5 (Version None)
Quarter: 2011Q2

REPORT INFORMATION
  Report Type: 
  Country: None (occurrence: None)
  Receive Date: 20110613
  Receipt Date: 20110609
  Transmission Date: 20111010
  Serious: Yes (Hospitalization)
  Sender: FDA-Public Use
  Company Number: US-BRISTOL-MYERS SQUIBB COMPANY-15687254

PATIENT
  Age: 63 Year
  Sex: Female
  Weight: 122 kg

DRUGS (2)
  1. CARBOPLATIN [Suspect]
     Indication: BREAST CANCER METASTATIC
     Dosage: LAST DOSE ON 15APR11 AND HOLD ON 19APR11,C3D8;216MG;RECENT:09JUN2011
     Route: 042
     Dates: start: 20110415
  2. IXABEPILONE [Suspect]
     Indication: BREAST CANCER METASTATIC
     Dosage: LAST DOSE ON 15APR11 AND HOLD ON 19APR11,C3D8;35MG;RECENT:09JUN2011
     Route: 042
     Dates: start: 20110408

REACTIONS (4)
  - ATRIAL FIBRILLATION [None]
  - HYPOTENSION [None]
  - DIARRHOEA [None]
  - RENAL FAILURE ACUTE [None]
